FAERS Safety Report 11742013 (Version 1)
Quarter: 2015Q4

REPORT INFORMATION
  Report Type: Spontaneous
  Country: US (occurrence: None)
  Receive Date: 20151113
  Receipt Date: 20151113
  Transmission Date: 20160304
  Serious: Yes (Other)
  Sender: FDA-Public Use
  Company Number: None

PATIENT
  Age: 69 Year
  Sex: Female

DRUGS (9)
  1. METFORMIN HCL [Concomitant]
     Active Substance: METFORMIN HYDROCHLORIDE
  2. VITAMIN D [Concomitant]
     Active Substance: CHOLECALCIFEROL
  3. CLARITIN [Concomitant]
     Active Substance: LORATADINE
  4. OMEGA 3 [Concomitant]
     Active Substance: OMEGA-3 FATTY ACIDS
  5. LOVASTATIN. [Concomitant]
     Active Substance: LOVASTATIN
  6. XELODA [Suspect]
     Active Substance: CAPECITABINE
     Indication: BREAST CANCER
     Route: 048
     Dates: start: 20150403
  7. CALCIUM [Concomitant]
     Active Substance: CALCIUM
  8. HERCEPTIN [Concomitant]
     Active Substance: TRASTUZUMAB
  9. XGEVA [Concomitant]
     Active Substance: DENOSUMAB

REACTIONS (5)
  - Diarrhoea [None]
  - Palmar-plantar erythrodysaesthesia syndrome [None]
  - Paraesthesia [None]
  - Dry skin [None]
  - Burning sensation [None]

NARRATIVE: CASE EVENT DATE: 20150911
